FAERS Safety Report 8153442-5 (Version None)
Quarter: 2012Q1

REPORT INFORMATION
  Report Type: 
  Country: None (occurrence: None)
  Receive Date: 20120221
  Receipt Date: 20120213
  Transmission Date: 20120608
  Serious: Yes (Hospitalization)
  Sender: FDA-Public Use
  Company Number: IT-ROCHE-1039774

PATIENT
  Sex: Male

DRUGS (8)
  1. BROTIZOLAM [Concomitant]
     Indication: INSOMNIA
     Route: 048
  2. CHLORPROMAZINE HCL [Suspect]
     Indication: INTENTIONAL OVERDOSE
     Route: 048
     Dates: start: 20111214, end: 20111214
  3. ALCOHOLIC BEVERAGE [Concomitant]
  4. CLONAZEPAM [Concomitant]
     Indication: EPILEPSY
     Route: 048
  5. CHLORPROMAZINE HCL [Concomitant]
     Indication: PERSONALITY DISORDER
     Route: 048
  6. SEROQUEL [Concomitant]
     Indication: PERSONALITY DISORDER
     Route: 048
  7. CLONAZEPAM [Suspect]
     Indication: INTENTIONAL OVERDOSE
     Route: 048
     Dates: start: 20111214, end: 20111214
  8. LENDORMIN [Suspect]
     Indication: INTENTIONAL OVERDOSE
     Route: 048
     Dates: start: 20111214, end: 20111214

REACTIONS (2)
  - CONFUSIONAL STATE [None]
  - SOPOR [None]
